FAERS Safety Report 18424209 (Version 8)
Quarter: 2021Q3

REPORT INFORMATION
  Report Type: Other
  Country: CA (occurrence: CA)
  Receive Date: 20201025
  Receipt Date: 20210909
  Transmission Date: 20211014
  Serious: Yes (Other)
  Sender: FDA-Public Use
  Company Number: CA-ROCHE-2424430

PATIENT
  Age: 53 Year
  Sex: Female

DRUGS (9)
  1. FAMPYRA [Concomitant]
     Active Substance: DALFAMPRIDINE
  2. NAPROXEN. [Concomitant]
     Active Substance: NAPROXEN
  3. VITAMIN C [Concomitant]
     Active Substance: ASCORBIC ACID
  4. OCREVUS [Suspect]
     Active Substance: OCRELIZUMAB
     Indication: RELAPSING-REMITTING MULTIPLE SCLEROSIS
     Dosage: 300 MG AT DAY 0 AND 14, THEN 600 MG EVERY 6 MONTH
     Route: 042
     Dates: start: 20190301
  5. TYLENOL [Concomitant]
     Active Substance: ACETAMINOPHEN
  6. PREGABALIN. [Concomitant]
     Active Substance: PREGABALIN
     Dosage: (MORNING AND NIGHT)
  7. OXYBUTIN [Concomitant]
     Active Substance: OXYBUTYNIN
  8. CALCIUM [Concomitant]
     Active Substance: CALCIUM
  9. TYSABRI [Concomitant]
     Active Substance: NATALIZUMAB
     Dates: start: 20210721

REACTIONS (8)
  - Walking aid user [Unknown]
  - Ankle fracture [Recovered/Resolved]
  - Arthralgia [Unknown]
  - Peripheral swelling [Not Recovered/Not Resolved]
  - Lymphopenia [Unknown]
  - Fall [Unknown]
  - Tibia fracture [Recovered/Resolved with Sequelae]
  - Leukopenia [Recovered/Resolved]

NARRATIVE: CASE EVENT DATE: 20190919
